FAERS Safety Report 5914364-0 (Version None)
Quarter: 2008Q4

REPORT INFORMATION
  Report Type: 
  Country: None (occurrence: None)
  Receive Date: 20081007
  Receipt Date: 20080929
  Transmission Date: 20090506
  Serious: No
  Sender: FDA-Public Use
  Company Number: TPA2008A01383

PATIENT
  Age: 57 Year
  Sex: Female

DRUGS (7)
  1. ACTOS [Suspect]
     Indication: TYPE 2 DIABETES MELLITUS
     Dosage: 45 MG, 1 IN 1 D, PER ORAL
     Route: 048
     Dates: start: 20080423
  2. METOPROLOL TARTRATE [Suspect]
     Dosage: PER ORAL
     Route: 048
     Dates: start: 20080423, end: 20080828
  3. COSOPT [Concomitant]
  4. GLIMEPIRIDE [Concomitant]
  5. ZOLPIDEM TARTRATE [Concomitant]
  6. LISINOPRIL/HCTZ (HYDROCHLOROTHIAZIDE, LISINOPRIL) [Concomitant]
  7. AMLODIPINE(AMLODIPINE) (TABLETS) [Concomitant]

REACTIONS (2)
  - HYPOTENSION [None]
  - PRODUCT QUALITY ISSUE [None]
